FAERS Safety Report 23327030 (Version 4)
Quarter: 2024Q1

REPORT INFORMATION
  Report Type: Spontaneous
  Country: US (occurrence: US)
  Receive Date: 20231221
  Receipt Date: 20240319
  Transmission Date: 20240410
  Serious: Yes (Death)
  Sender: FDA-Public Use
  Company Number: US-PFIZER INC-PV202300203668

PATIENT
  Age: 68 Year
  Sex: Male
  Weight: 65.3 kg

DRUGS (5)
  1. TALZENNA [Suspect]
     Active Substance: TALAZOPARIB TOSYLATE
     Dosage: 0.35 MG, 1X/DAY
     Route: 048
  2. TALZENNA [Suspect]
     Active Substance: TALAZOPARIB TOSYLATE
     Dosage: 0.35 MG CAPSULE - TAKE ONE CAPSULE BY MOUTH DAILY
     Route: 048
     Dates: end: 20240223
  3. LOMOTIL [Concomitant]
     Active Substance: ATROPINE SULFATE\DIPHENOXYLATE HYDROCHLORIDE
     Indication: Diarrhoea
     Dosage: 2.5-0.025 MG/TAKE 1 TABLET BY MOUTH 3 (THREE) TIMES DAILY
     Route: 048
  4. NEURONTIN [Concomitant]
     Active Substance: GABAPENTIN
     Dosage: TAKE 2 CAPSULES (600 MG) BY MOUTH TWICE DAILY
     Route: 048
  5. PROCARDIA [Concomitant]
     Active Substance: NIFEDIPINE
     Dosage: TAKE 1 TABLET (90 MG TOTAL) BY MOUTH 2 (TWO) TIMES A DAY
     Route: 048

REACTIONS (2)
  - Neoplasm progression [Fatal]
  - Pain [Unknown]

NARRATIVE: CASE EVENT DATE: 20230101
